FAERS Safety Report 9302987 (Version 2)
Quarter: 2013Q2

REPORT INFORMATION
  Report Type: Spontaneous
  Country: NL (occurrence: NL)
  Receive Date: 20130522
  Receipt Date: 20130528
  Transmission Date: 20140414
  Serious: Yes (Life-Threatening, Hospitalization)
  Sender: FDA-Public Use
  Company Number: NL-PFIZER INC-2013153508

PATIENT
  Age: 40 Year
  Sex: Female

DRUGS (1)
  1. ETHINYLESTRADIOL/LEVONORGESTREL [Suspect]
     Dosage: 20UG ETHINYL ESTRADIOL AND 100UG LEVONORGESTREL, CYCLIC
     Dates: start: 2013, end: 20130510

REACTIONS (5)
  - Hypertensive crisis [Recovering/Resolving]
  - Headache [None]
  - Vertigo [None]
  - Malignant hypertension [None]
  - Papilloedema [None]
